FAERS Safety Report 6308291-7 (Version None)
Quarter: 2009Q3

REPORT INFORMATION
  Report Type: 
  Country: None (occurrence: None)
  Receive Date: 20090813
  Receipt Date: 20090807
  Transmission Date: 20100115
  Serious: Yes (Hospitalization)
  Sender: FDA-Public Use
  Company Number: US-MERCK-0908USA01102

PATIENT
  Age: 79 Year
  Sex: Male

DRUGS (2)
  1. VYTORIN [Suspect]
     Indication: BLOOD CHOLESTEROL
     Route: 048
     Dates: end: 20080528
  2. ZETIA [Suspect]
     Route: 048

REACTIONS (4)
  - CHEST PAIN [None]
  - GAIT DISTURBANCE [None]
  - PAIN [None]
  - PANCREATITIS [None]
